FAERS Safety Report 13244575 (Version 1)
Quarter: 2017Q1

REPORT INFORMATION
  Report Type: Spontaneous
  Country: US (occurrence: US)
  Receive Date: 20170216
  Receipt Date: 20170216
  Transmission Date: 20170428
  Serious: No
  Sender: FDA-Public Use
  Company Number: US-JAZZ-JPI-P-012139

PATIENT
  Age: 56 Year
  Sex: Female
  Weight: 60 kg

DRUGS (13)
  1. XYREM [Suspect]
     Active Substance: SODIUM OXYBATE
     Route: 048
     Dates: start: 20090101
  2. XYREM [Suspect]
     Active Substance: SODIUM OXYBATE
     Route: 048
     Dates: start: 200905
  3. XYREM [Suspect]
     Active Substance: SODIUM OXYBATE
     Route: 048
     Dates: start: 200906
  4. XYREM [Suspect]
     Active Substance: SODIUM OXYBATE
     Dosage: SINGLE (3.825 GM FIRST DOSE/3.25 GM SECOND DOSE)
     Route: 048
  5. LEVOTHYROXINE SODIUM. [Concomitant]
     Active Substance: LEVOTHYROXINE SODIUM
  6. XYREM [Suspect]
     Active Substance: SODIUM OXYBATE
     Indication: HYPERSOMNIA
     Route: 048
     Dates: start: 20081224
  7. XYREM [Suspect]
     Active Substance: SODIUM OXYBATE
     Dosage: UNKNOWN SINGLE (TITRATED UP AT 0.25 GM INCREMENTS)
     Route: 048
     Dates: start: 2009, end: 2009
  8. FINASTERIDE. [Concomitant]
     Active Substance: FINASTERIDE
  9. XYREM [Suspect]
     Active Substance: SODIUM OXYBATE
     Route: 048
     Dates: start: 20090619
  10. XYREM [Suspect]
     Active Substance: SODIUM OXYBATE
     Route: 048
     Dates: start: 200906, end: 200906
  11. XYREM [Suspect]
     Active Substance: SODIUM OXYBATE
     Route: 048
  12. VENLAFAXINE HYDROCHLORIDE. [Concomitant]
     Active Substance: VENLAFAXINE HYDROCHLORIDE
  13. XYREM [Suspect]
     Active Substance: SODIUM OXYBATE
     Route: 048
     Dates: start: 200812, end: 20081231

REACTIONS (5)
  - Body temperature fluctuation [Unknown]
  - Condition aggravated [Unknown]
  - Blood corticotrophin decreased [Unknown]
  - Alopecia [Not Recovered/Not Resolved]
  - Blood cortisol increased [Unknown]

NARRATIVE: CASE EVENT DATE: 200910
